FAERS Safety Report 24725187 (Version 1)
Quarter: 2024Q4

REPORT INFORMATION
  Report Type: Spontaneous
  Country: IN (occurrence: IN)
  Receive Date: 20241212
  Receipt Date: 20241212
  Transmission Date: 20250114
  Serious: Yes (Death, Other)
  Sender: TAKEDA
  Company Number: IN-TAKEDA-2024TUS122413

PATIENT
  Age: 20 Year
  Sex: Male
  Weight: 39 kg

DRUGS (1)
  1. ELAPRASE [Suspect]
     Active Substance: IDURSULFASE
     Indication: Product used for unknown indication
     Dosage: 0.5 MILLIGRAM/KILOGRAM, Q2WEEKS
     Dates: start: 20180314

REACTIONS (1)
  - Tracheomalacia [Fatal]

NARRATIVE: CASE EVENT DATE: 20240501
